FAERS Safety Report 6705955-8 (Version None)
Quarter: 2010Q2

REPORT INFORMATION
  Report Type: 
  Country: None (occurrence: None)
  Receive Date: 20100503
  Receipt Date: 20100215
  Transmission Date: 20101027
  Serious: No
  Sender: FDA-Public Use
  Company Number: US-ASTRAZENECA-2010SE06632

PATIENT
  Age: 20018 Day
  Sex: Female
  Weight: 189 kg

DRUGS (5)
  1. NEXIUM [Suspect]
     Indication: GASTROOESOPHAGEAL REFLUX DISEASE
     Route: 048
     Dates: start: 20080101
  2. LORTAB [Concomitant]
  3. GEMFIBROZIL [Concomitant]
     Indication: BLOOD CHOLESTEROL INCREASED
  4. LISINOPRIL AND HYDROCHLOROTHIAZIDE [Concomitant]
     Indication: HYPERTENSION
  5. PRISTIQ [Concomitant]
     Indication: DEPRESSION

REACTIONS (3)
  - DRUG INEFFECTIVE [None]
  - EAR INFECTION [None]
  - SINUSITIS [None]
